FAERS Safety Report 8511765-1 (Version None)
Quarter: 2012Q3

REPORT INFORMATION
  Report Type: 
  Country: None (occurrence: None)
  Receive Date: 20120711
  Receipt Date: 20120711
  Transmission Date: 20120928
  Serious: Yes (Other)
  Sender: FDA-Public Use
  Company Number: None

PATIENT
  Age: 28 Year
  Sex: Female

DRUGS (1)
  1. ACETIC ACID [Suspect]
     Dosage: VAGINAL
     Route: 067

REACTIONS (2)
  - VAGINAL HAEMORRHAGE [None]
  - VAGINAL INFECTION [None]
